FAERS Safety Report 13533761 (Version 2)
Quarter: 2017Q2

REPORT INFORMATION
  Report Type: Spontaneous
  Country: DE (occurrence: DE)
  Receive Date: 20170510
  Receipt Date: 20170515
  Transmission Date: 20170830
  Serious: Yes (Death, Other)
  Sender: FDA-Public Use
  Company Number: DE-GILEAD-2017-0271320

PATIENT
  Age: 34 Year
  Sex: Male

DRUGS (2)
  1. DARUNAVIR [Concomitant]
     Active Substance: DARUNAVIR
     Dosage: UNK
     Dates: start: 2013
  2. TRUVADA [Suspect]
     Active Substance: EMTRICITABINE\TENOFOVIR DISOPROXIL FUMARATE
     Indication: HIV INFECTION
     Dosage: UNK
     Route: 065
     Dates: start: 2013

REACTIONS (6)
  - Toxoplasmosis [Unknown]
  - Organic brain syndrome [Unknown]
  - Brain oedema [Unknown]
  - General physical health deterioration [Unknown]
  - Death [Fatal]
  - Immune reconstitution inflammatory syndrome [Unknown]
